FAERS Safety Report 17620769 (Version 1)
Quarter: 2020Q2

REPORT INFORMATION
  Report Type: Report from Study
  Country: BR (occurrence: BR)
  Receive Date: 20200403
  Receipt Date: 20200403
  Transmission Date: 20200713
  Serious: Yes (Hospitalization, Other)
  Sender: FDA-Public Use
  Company Number: BR-UCBSA-2020013717

PATIENT
  Age: 64 Year
  Sex: Female
  Weight: 37 kg

DRUGS (2)
  1. DIPIRONA [Concomitant]
     Active Substance: METAMIZOLE
     Indication: ANALGESIC THERAPY
     Dosage: UNK
     Route: 048
     Dates: start: 201910
  2. CERTOLIZUMAB PEGOL RA [Suspect]
     Active Substance: CERTOLIZUMAB PEGOL
     Indication: RHEUMATOID ARTHRITIS
     Dosage: UNK
     Route: 058
     Dates: start: 201807, end: 201810

REACTIONS (2)
  - Gastric cancer [Not Recovered/Not Resolved]
  - Tachycardia [Not Recovered/Not Resolved]

NARRATIVE: CASE EVENT DATE: 201910
